FAERS Safety Report 15089726 (Version 18)
Quarter: 2019Q2

REPORT INFORMATION
  Report Type: Report from Study
  Country: BR (occurrence: BR)
  Receive Date: 20180629
  Receipt Date: 20190425
  Transmission Date: 20190711
  Serious: Yes (Other)
  Sender: FDA-Public Use
  Company Number: BR-MYLANLABS-2018M1046815

PATIENT
  Sex: Male
  Weight: 105 kg

DRUGS (20)
  1. POLYVITAMIN                        /02273501/ [Concomitant]
     Indication: PRODUCT USED FOR UNKNOWN INDICATION
     Dosage: UNK
  2. FENERGAN                           /00033001/ [Concomitant]
     Active Substance: PROMETHAZINE HYDROCHLORIDE
     Indication: DEPRESSION
     Dosage: 25 MILLIGRAM, QH
  3. RIVOTRIL [Concomitant]
     Active Substance: CLONAZEPAM
     Indication: STRESS
     Dosage: UNK
     Route: 048
  4. FENERGAN                           /00033001/ [Concomitant]
     Active Substance: PROMETHAZINE HYDROCHLORIDE
     Dosage: UNK
  5. LEPONEX 25 MG [Suspect]
     Active Substance: CLOZAPINE
     Dosage: 25 MILLIGRAM, QD
     Route: 048
  6. RIVOTRIL [Concomitant]
     Active Substance: CLONAZEPAM
     Indication: ANXIETY
  7. NOOTROPYL [Concomitant]
     Active Substance: PIRACETAM
     Indication: PRODUCT USED FOR UNKNOWN INDICATION
     Dosage: 880 MILLIGRAM
  8. LEPONEX 25 MG [Suspect]
     Active Substance: CLOZAPINE
     Dosage: 25 MILLIGRAM, PM
     Route: 048
     Dates: end: 201707
  9. ARIPIPRAZOLE. [Suspect]
     Active Substance: ARIPIPRAZOLE
     Indication: PRODUCT USED FOR UNKNOWN INDICATION
     Dosage: UNK
  10. HYDRALAZINE [Concomitant]
     Active Substance: HYDRALAZINE HYDROCHLORIDE
     Indication: ANXIOLYTIC THERAPY
     Dosage: UNK
  11. ARISTAB [Suspect]
     Active Substance: ARIPIPRAZOLE
     Indication: DEPRESSION
     Dosage: UNK
     Dates: start: 2013
  12. NEOZINE [Concomitant]
     Active Substance: LEVOMEPROMAZINE
     Indication: HEADACHE
     Dosage: 0.5 DOSAGE FORM, QD
     Route: 048
  13. FLUOXETINE [Concomitant]
     Active Substance: FLUOXETINE HYDROCHLORIDE
     Indication: PRODUCT USED FOR UNKNOWN INDICATION
     Dosage: UNK
  14. LEPONEX 25 MG [Suspect]
     Active Substance: CLOZAPINE
     Indication: DEPRESSION
     Dosage: 25 MILLIGRAM, QH
     Route: 048
     Dates: start: 2012, end: 201606
  15. RIVOTRIL [Concomitant]
     Active Substance: CLONAZEPAM
     Indication: ANXIOLYTIC THERAPY
     Dosage: 2 DOSAGE FORM, QD
     Route: 048
  16. LEPONEX 25 MG [Suspect]
     Active Substance: CLOZAPINE
     Dosage: UNK
     Route: 048
  17. MINERALS [Concomitant]
     Active Substance: MINERALS
     Indication: PRODUCT USED FOR UNKNOWN INDICATION
     Dosage: UNK
  18. NEOZINE [Concomitant]
     Active Substance: LEVOMEPROMAZINE
     Dosage: 50 MILLIGRAM
  19. LEPONEX 25 MG [Suspect]
     Active Substance: CLOZAPINE
     Dosage: 1 DOSAGE FORM, QD
     Route: 048
     Dates: start: 201409, end: 201707
  20. ARISTAB [Suspect]
     Active Substance: ARIPIPRAZOLE
     Dosage: UNK

REACTIONS (47)
  - Pneumonia [Not Recovered/Not Resolved]
  - Cerebrovascular accident [Unknown]
  - Impatience [Unknown]
  - Respiratory disorder [Not Recovered/Not Resolved]
  - Spinal pain [Unknown]
  - Dyspnoea [Not Recovered/Not Resolved]
  - Hypothalamo-pituitary disorder [Unknown]
  - Haemoptysis [Unknown]
  - Mental disorder [Not Recovered/Not Resolved]
  - Anaemia [Not Recovered/Not Resolved]
  - Skin disorder [Unknown]
  - Visual impairment [Unknown]
  - Bronchial haemorrhage [Unknown]
  - Apnoea [Not Recovered/Not Resolved]
  - Gastric perforation [Recovered/Resolved]
  - Hernia [Unknown]
  - Cough [Unknown]
  - Pain in extremity [Unknown]
  - Bronchitis [Recovered/Resolved]
  - Fatigue [Not Recovered/Not Resolved]
  - Abdominal neoplasm [Unknown]
  - Product use in unapproved indication [Unknown]
  - General physical condition abnormal [Unknown]
  - Libido decreased [Recovered/Resolved]
  - Muscular weakness [Unknown]
  - Weight decreased [Unknown]
  - Rheumatic disorder [Unknown]
  - Dizziness [Unknown]
  - Catarrh [Unknown]
  - Malaise [Unknown]
  - Ill-defined disorder [Unknown]
  - Ear infection [Recovered/Resolved]
  - Drug intolerance [Unknown]
  - Laryngeal stenosis [Recovering/Resolving]
  - Angina pectoris [Recovered/Resolved]
  - Osteoporosis [Recovering/Resolving]
  - Hypotonia [Unknown]
  - Back pain [Unknown]
  - Decreased immune responsiveness [Not Recovered/Not Resolved]
  - Pericarditis [Not Recovered/Not Resolved]
  - Laryngeal disorder [Not Recovered/Not Resolved]
  - Haemorrhage [Recovered/Resolved with Sequelae]
  - Increased bronchial secretion [Unknown]
  - Hyperhidrosis [Unknown]
  - Vocal cord disorder [Unknown]
  - Bone density decreased [Unknown]
  - Cerebral disorder [Unknown]
